FAERS Safety Report 22524482 (Version 2)
Quarter: 2023Q2

REPORT INFORMATION
  Report Type: Spontaneous
  Country: US (occurrence: US)
  Receive Date: 20230606
  Receipt Date: 20230630
  Transmission Date: 20230721
  Serious: Yes (Other)
  Sender: FDA-Public Use
  Company Number: US-Hikma Pharmaceuticals USA Inc.-US-H14001-23-01776

PATIENT
  Sex: Male

DRUGS (2)
  1. LITHIUM CARBONATE [Suspect]
     Active Substance: LITHIUM CARBONATE
     Indication: Product used for unknown indication
     Dosage: 2 DOSAGE FORM
     Route: 065
  2. LITHIUM CARBONATE [Suspect]
     Active Substance: LITHIUM CARBONATE
     Indication: Product used for unknown indication
     Route: 065

REACTIONS (12)
  - Heart rate increased [Unknown]
  - Movement disorder [Recovering/Resolving]
  - Paralysis [Recovering/Resolving]
  - Inflammation [Recovering/Resolving]
  - Fear of death [Unknown]
  - Hot flush [Unknown]
  - Musculoskeletal stiffness [Unknown]
  - Dizziness [Unknown]
  - Erectile dysfunction [Unknown]
  - Seizure [Unknown]
  - Epilepsy [Unknown]
  - Product label confusion [Unknown]

NARRATIVE: CASE EVENT DATE: 20230323
